FAERS Safety Report 5875231-4 (Version None)
Quarter: 2008Q3

REPORT INFORMATION
  Report Type: 
  Country: None (occurrence: None)
  Receive Date: 20080909
  Receipt Date: 20080829
  Transmission Date: 20090109
  Serious: Yes (Death, Hospitalization)
  Sender: FDA-Public Use
  Company Number: US-ROCHE-576671

PATIENT
  Sex: Male

DRUGS (11)
  1. PEGASYS [Suspect]
     Route: 058
     Dates: start: 20070913, end: 20080507
  2. RIBAVIRIN [Suspect]
     Route: 048
     Dates: start: 20070913, end: 20080507
  3. TRIAMCINOLONE [Concomitant]
     Dosage: DRUG: TRIAMCINOLONE, PRESCRIBED FOR 90 DAYS-KOP
     Route: 065
     Dates: start: 20080315
  4. POTASSIUM CHLORIDE [Concomitant]
     Dosage: DRUG: POTASSIUM 8 MEQ LA, PRESCRIBED FOR 30 DAYS
     Dates: start: 20080314
  5. DIPHENHYDRAMINE HCL [Concomitant]
     Dosage: PRESCRIBED FOR 30 DAYS
     Dates: start: 20080325
  6. ATENOLOL [Concomitant]
     Dosage: PRESCRIBED FOR 30 DAYS
     Dates: start: 20080326
  7. FUROSEMIDE [Concomitant]
     Dosage: PRESCRIBED FOR 30 DAYS
     Dates: start: 20080326
  8. RANITIDINE [Concomitant]
     Dosage: PRESCRIBED FOR 30 DAYS
     Dates: start: 20080326
  9. SULFAMETHOXAZOLE AND TRIMETHOPRIM [Concomitant]
     Dates: start: 20080326
  10. CLARITHROMYCIN [Concomitant]
     Dates: start: 20080326
  11. LOPERAMIDE HCL [Concomitant]
     Dosage: PRESCRIBED FOR 30 DAYS (AS NEEDED)
     Dates: start: 20080326

REACTIONS (3)
  - BONE NEOPLASM MALIGNANT [None]
  - LUNG ADENOCARCINOMA [None]
  - MENTAL STATUS CHANGES [None]
